FAERS Safety Report 6025656-1 (Version None)
Quarter: 2008Q4

REPORT INFORMATION
  Report Type: 
  Country: None (occurrence: None)
  Receive Date: 20081231
  Receipt Date: 20081229
  Transmission Date: 20090506
  Serious: Yes (Hospitalization, Other)
  Sender: FDA-Public Use
  Company Number: BR-B.I. PHARMACEUTICALS,INC./RIDGEFIELD-2008-BR-00460BR

PATIENT
  Age: 83 Year
  Sex: Male

DRUGS (14)
  1. SPIRIVA [Suspect]
     Dates: start: 20030101
  2. COMBIVENT [Suspect]
     Dates: start: 19980101
  3. BEROTEC [Suspect]
     Dates: start: 19980101
  4. ATROVENT [Suspect]
     Dates: start: 19980101
  5. DUOVENT [Suspect]
     Dates: start: 19980101
  6. XALATAN [Suspect]
     Indication: GLAUCOMA
     Route: 031
     Dates: start: 20060101
  7. SERETIDE [Concomitant]
  8. COMBIGAN [Concomitant]
     Dates: start: 20060101
  9. OMEPRAZOLE [Concomitant]
     Dates: start: 19980101
  10. ACIDO ACETILSALICILICO [Concomitant]
     Dates: start: 20000101
  11. SINVASTATINA [Concomitant]
     Dates: start: 20030101
  12. PONDERA [Concomitant]
     Dates: start: 20070101
  13. PAMELOR [Concomitant]
     Dates: start: 20050101, end: 20070101
  14. PHARMACY COMPOUND MEDICINE [Concomitant]
     Indication: OSTEOARTHRITIS

REACTIONS (8)
  - CARDIAC DISORDER [None]
  - CATARACT [None]
  - CONFUSIONAL STATE [None]
  - EMPHYSEMA [None]
  - HYPERTENSION [None]
  - INSOMNIA [None]
  - ISCHAEMIA [None]
  - PNEUMONIA [None]
